FAERS Safety Report 6367824-5 (Version None)
Quarter: 2009Q3

REPORT INFORMATION
  Report Type: 
  Country: None (occurrence: None)
  Receive Date: 20090921
  Receipt Date: 20090910
  Transmission Date: 20100115
  Serious: Yes (Hospitalization, Other)
  Sender: FDA-Public Use
  Company Number: US-ABBOTT-09P-163-0596244-00

PATIENT
  Sex: Female
  Weight: 57.658 kg

DRUGS (4)
  1. HUMIRA [Suspect]
     Indication: RHEUMATOID ARTHRITIS
     Route: 058
     Dates: start: 20071127
  2. HUMIRA [Suspect]
     Indication: RHEUMATOID ARTHRITIS
     Route: 058
     Dates: end: 20081201
  3. HUMIRA [Suspect]
     Route: 058
     Dates: start: 20090126, end: 20090324
  4. HUMIRA [Suspect]
     Route: 058
     Dates: start: 20090528

REACTIONS (15)
  - ASTHENIA [None]
  - BRONCHITIS [None]
  - COUGH [None]
  - DYSPHAGIA [None]
  - DYSPNOEA [None]
  - EYELID FUNCTION DISORDER [None]
  - HEAD DISCOMFORT [None]
  - MALAISE [None]
  - MASTICATION DISORDER [None]
  - MUSCLE DISORDER [None]
  - NASOPHARYNGITIS [None]
  - PYREXIA [None]
  - RESPIRATORY TRACT CONGESTION [None]
  - SERRATIA INFECTION [None]
  - TOTAL LUNG CAPACITY DECREASED [None]
